FAERS Safety Report 19887289 (Version 3)
Quarter: 2022Q1

REPORT INFORMATION
  Report Type: Spontaneous
  Country: BR (occurrence: BR)
  Receive Date: 20210927
  Receipt Date: 20220324
  Transmission Date: 20220423
  Serious: Yes (Hospitalization, Other)
  Sender: FDA-Public Use
  Company Number: BR-GLAXOSMITHKLINE-BR2021AMR058886

PATIENT
  Sex: Female
  Weight: 63 kg

DRUGS (3)
  1. NUCALA [Suspect]
     Active Substance: MEPOLIZUMAB
     Indication: Asthma
     Dosage: 100 MG/ML, Z, EVERY 4 WEEKS
     Dates: start: 20210105
  2. UMECLIDINIUM BROMIDE [Suspect]
     Active Substance: UMECLIDINIUM BROMIDE
     Indication: Product used for unknown indication
     Dosage: UNK
  3. SYMBICORT [Suspect]
     Active Substance: BUDESONIDE\FORMOTEROL FUMARATE DIHYDRATE
     Indication: Product used for unknown indication
     Dosage: UNK

REACTIONS (13)
  - Diverticulitis [Recovered/Resolved]
  - Abdominal pain [Unknown]
  - Asthmatic crisis [Not Recovered/Not Resolved]
  - Intestinal resection [Unknown]
  - Eosinophil count abnormal [Unknown]
  - Cough [Recovered/Resolved]
  - Dyspnoea [Unknown]
  - Wheezing [Recovered/Resolved]
  - Procedural pain [Not Recovered/Not Resolved]
  - Infection [Unknown]
  - Inflammation [Unknown]
  - Product dose omission issue [Unknown]
  - Inappropriate schedule of product administration [Not Recovered/Not Resolved]

NARRATIVE: CASE EVENT DATE: 20210101
